FAERS Safety Report 6717745-0 (Version None)
Quarter: 2010Q2

REPORT INFORMATION
  Report Type: 
  Country: None (occurrence: None)
  Receive Date: 20100510
  Receipt Date: 20100504
  Transmission Date: 20101027
  Serious: Yes (Hospitalization)
  Sender: FDA-Public Use
  Company Number: US-SHIRE-ALL1-2010-02568

PATIENT

DRUGS (2)
  1. FOSRENOL [Suspect]
     Indication: HYPERPHOSPHATAEMIA
     Dosage: UNK, UNKNOWN
     Route: 048
  2. FOSRENOL [Suspect]

REACTIONS (1)
  - ADVERSE EVENT [None]
